FAERS Safety Report 20024019 (Version 1)
Quarter: 2021Q4

REPORT INFORMATION
  Report Type: Spontaneous
  Country: US (occurrence: US)
  Receive Date: 20211102
  Receipt Date: 20211102
  Transmission Date: 20220303
  Serious: No
  Sender: FDA-Public Use
  Company Number: US-GW PHARMA-202110USGW05272

PATIENT

DRUGS (1)
  1. EPIDIOLEX [Suspect]
     Active Substance: CANNABIDIOL
     Indication: Lennox-Gastaut syndrome
     Dosage: 22.86 MG/KG, 280 MILLIGRAM, BID
     Route: 048
     Dates: start: 20200212

REACTIONS (2)
  - Weight decreased [Unknown]
  - Prescribed overdose [Unknown]
